FAERS Safety Report 11422246 (Version 1)
Quarter: 2015Q3

REPORT INFORMATION
  Report Type: Not Available
  Country: US (occurrence: US)
  Receive Date: 20150827
  Receipt Date: 20150827
  Transmission Date: 20151125
  Serious: No
  Sender: FDA-Public Use
  Company Number: US-LUPIN PHARMACEUTICALS INC.-E2B_00002664

PATIENT
  Sex: Female
  Weight: 54.48 kg

DRUGS (1)
  1. AMLODIPINE BESYLATE TABLETS 5 MG [Suspect]
     Active Substance: AMLODIPINE BESYLATE
     Indication: HYPERTENSION

REACTIONS (5)
  - Drug dose omission [Unknown]
  - Anxiety [Recovered/Resolved]
  - Product physical issue [Unknown]
  - Hypertension [Recovered/Resolved]
  - Nervousness [Recovered/Resolved]
